FAERS Safety Report 15151283 (Version 1)
Quarter: 2018Q3

REPORT INFORMATION
  Report Type: Spontaneous
  Country: US (occurrence: US)
  Receive Date: 20180716
  Receipt Date: 20180716
  Transmission Date: 20181010
  Serious: No
  Sender: FDA-Public Use
  Company Number: US-BEH-2018092752

PATIENT
  Sex: Male
  Weight: 79.37 kg

DRUGS (28)
  1. HIZENTRA [Suspect]
     Active Substance: HUMAN IMMUNOGLOBULIN G
     Indication: IMMUNODEFICIENCY COMMON VARIABLE
     Dosage: 12 G, QW
     Route: 058
     Dates: start: 20110214
  2. HIZENTRA [Suspect]
     Active Substance: HUMAN IMMUNOGLOBULIN G
     Dosage: 12 G, TOT
     Route: 058
  3. EPINEPHRINE. [Concomitant]
     Active Substance: EPINEPHRINE
  4. RAMIPRIL. [Concomitant]
     Active Substance: RAMIPRIL
  5. TESTOSTERONE. [Concomitant]
     Active Substance: TESTOSTERONE
  6. DIPHENHYDRAMINE. [Concomitant]
     Active Substance: DIPHENHYDRAMINE
  7. BRILINTA [Concomitant]
     Active Substance: TICAGRELOR
  8. ASPIRIN. [Concomitant]
     Active Substance: ASPIRIN
  9. PROVIGIL [Concomitant]
     Active Substance: MODAFINIL
  10. PRASUGREL. [Concomitant]
     Active Substance: PRASUGREL
  11. LOSARTAN/HCT [Concomitant]
     Active Substance: HYDROCHLOROTHIAZIDE\LOSARTAN POTASSIUM
  12. NASONEX [Concomitant]
     Active Substance: MOMETASONE FUROATE
  13. PILOCARPINE. [Concomitant]
     Active Substance: PILOCARPINE
  14. FUROSEMIDE. [Concomitant]
     Active Substance: FUROSEMIDE
  15. METOPROLOL TARTRATE. [Concomitant]
     Active Substance: METOPROLOL TARTRATE
  16. CIPRODEX                           /00697202/ [Concomitant]
  17. CARVEDILOL. [Concomitant]
     Active Substance: CARVEDILOL
  18. RANEXA [Concomitant]
     Active Substance: RANOLAZINE
  19. DOXYCYCLINE. [Concomitant]
     Active Substance: DOXYCYCLINE
  20. MUPIROCIN. [Concomitant]
     Active Substance: MUPIROCIN
  21. SPIRONOLACTONE. [Concomitant]
     Active Substance: SPIRONOLACTONE
  22. AZITHROMYCIN ANHYDROUS. [Concomitant]
     Active Substance: AZITHROMYCIN ANHYDROUS
  23. TIZANIDINE. [Concomitant]
     Active Substance: TIZANIDINE
  24. FLOMAX [Concomitant]
     Active Substance: TAMSULOSIN HYDROCHLORIDE
  25. CLARINEX                           /01202601/ [Concomitant]
     Active Substance: LORATADINE\PSEUDOEPHEDRINE SULFATE
  26. FINASTERIDE. [Concomitant]
     Active Substance: FINASTERIDE
  27. AMBIEN [Concomitant]
     Active Substance: ZOLPIDEM TARTRATE
  28. TESTIM [Concomitant]
     Active Substance: TESTOSTERONE

REACTIONS (1)
  - Malaise [Unknown]
